FAERS Safety Report 13985325 (Version 1)
Quarter: 2017Q3

REPORT INFORMATION
  Report Type: Spontaneous
  Country: US (occurrence: None)
  Receive Date: 20170918
  Receipt Date: 20170918
  Transmission Date: 20171128
  Serious: No
  Sender: FDA-Public Use
  Company Number: None

PATIENT
  Age: 71 Year
  Sex: Female

DRUGS (8)
  1. SERTRALINE [Concomitant]
     Active Substance: SERTRALINE HYDROCHLORIDE
  2. SONATA [Concomitant]
     Active Substance: ZALEPLON
  3. URSODIOL. [Concomitant]
     Active Substance: URSODIOL
  4. KLONOPIN [Concomitant]
     Active Substance: CLONAZEPAM
  5. DUREZOL [Concomitant]
     Active Substance: DIFLUPREDNATE
  6. OCALIVA [Suspect]
     Active Substance: OBETICHOLIC ACID
     Indication: BILIARY CIRRHOSIS PRIMARY
     Route: 048
     Dates: start: 20170824
  7. VIGAMON [Concomitant]
  8. YUVAFEM [Concomitant]
     Active Substance: ESTRADIOL HEMIHYDRATE

REACTIONS (2)
  - Fatigue [None]
  - Pruritus [None]

NARRATIVE: CASE EVENT DATE: 201708
